FAERS Safety Report 18467801 (Version 1)
Quarter: 2020Q4

REPORT INFORMATION
  Report Type: Spontaneous
  Country: US (occurrence: US)
  Receive Date: 20201105
  Receipt Date: 20201105
  Transmission Date: 20210114
  Serious: Yes (Other)
  Sender: FDA-Public Use
  Company Number: US-PFIZER INC-2020424232

PATIENT
  Age: 26 Year
  Sex: Female

DRUGS (3)
  1. LACTATED RINGERS SOLUTION [Concomitant]
     Active Substance: CALCIUM CHLORIDE\POTASSIUM CHLORIDE\SODIUM CHLORIDE\SODIUM LACTATE
     Dosage: SOLUTION
  2. POLYCITRA [CITRIC ACID;POTASSIUM CITRATE;SODIUM CITRATE] [Concomitant]
     Dosage: 30 ML, EACH ML CONTAINS 1 MEQ POTASSIUM
     Route: 048
  3. MAGNESIUM SULFATE. [Suspect]
     Active Substance: MAGNESIUM SULFATE
     Indication: PRE-ECLAMPSIA
     Dosage: UNK
     Route: 042

REACTIONS (2)
  - Hyperkalaemia [Recovered/Resolved]
  - Hypermagnesaemia [Recovered/Resolved]
